FAERS Safety Report 6473695-9 (Version None)
Quarter: 2009Q4

REPORT INFORMATION
  Report Type: 
  Country: None (occurrence: None)
  Receive Date: 20091204
  Receipt Date: 20091127
  Transmission Date: 20100525
  Serious: Yes (Hospitalization, Other)
  Sender: FDA-Public Use
  Company Number: DE-JNJFOC-20091103521

PATIENT
  Age: 82 Year
  Sex: Female

DRUGS (15)
  1. HALDOL [Suspect]
     Route: 048
     Dates: start: 20090731, end: 20090827
  2. HALDOL [Suspect]
     Route: 048
     Dates: start: 20090731, end: 20090827
  3. HALDOL [Suspect]
     Route: 048
     Dates: start: 20090731, end: 20090827
  4. HALDOL [Suspect]
     Route: 048
     Dates: start: 20090731, end: 20090827
  5. HALDOL [Suspect]
     Route: 048
     Dates: start: 20090731, end: 20090827
  6. HALDOL [Suspect]
     Indication: DRUG USE FOR UNKNOWN INDICATION
     Route: 048
     Dates: start: 20090731, end: 20090827
  7. ZYPREXA [Suspect]
     Route: 048
     Dates: start: 20090824, end: 20090908
  8. ZYPREXA [Suspect]
     Route: 048
     Dates: start: 20090824, end: 20090908
  9. ZYPREXA [Suspect]
     Indication: DRUG USE FOR UNKNOWN INDICATION
     Route: 048
     Dates: start: 20090824, end: 20090908
  10. LORAZEPAM [Suspect]
     Route: 048
  11. LORAZEPAM [Suspect]
     Route: 048
  12. LORAZEPAM [Suspect]
     Indication: DRUG USE FOR UNKNOWN INDICATION
     Route: 048
  13. L-THYROXIN [Concomitant]
     Route: 048
  14. OMEPRAZOLE [Concomitant]
     Route: 048
  15. ZOPICLON [Concomitant]
     Route: 048

REACTIONS (1)
  - NEUTROPENIA [None]
